FAERS Safety Report 23933741 (Version 2)
Quarter: 2024Q3

REPORT INFORMATION
  Report Type: Spontaneous
  Country: NL (occurrence: NL)
  Receive Date: 20240603
  Receipt Date: 20240819
  Transmission Date: 20241016
  Serious: Yes (Life-Threatening, Hospitalization)
  Sender: MYLAN
  Company Number: NL-MYLANLABS-2024M1049813

PATIENT
  Age: 14 Year
  Sex: Male
  Weight: 60 kg

DRUGS (4)
  1. BACLOFEN [Interacting]
     Active Substance: BACLOFEN
     Indication: Dystonia
     Dosage: 364.5 MICROGRAM, QD (PUMP)
     Route: 037
  2. BACLOFEN [Interacting]
     Active Substance: BACLOFEN
     Dosage: 75 MICROGRAM, QD; FLEXIBLE PROGRAMMING WITH THREE BOLUSES OF75 MCG/BOLUS PER DAY
     Route: 037
  3. REMIFENTANIL [Interacting]
     Active Substance: REMIFENTANIL
     Indication: Pain
     Dosage: UNK
     Route: 065
     Dates: start: 2021, end: 2021
  4. PIRITRAMIDE [Interacting]
     Active Substance: PIRITRAMIDE
     Indication: Pain
     Dosage: 5 MILLIGRAM
     Route: 065
     Dates: start: 2021, end: 2021

REACTIONS (4)
  - Depressed level of consciousness [Recovered/Resolved]
  - Overdose [Recovered/Resolved]
  - Respiratory depression [Recovered/Resolved]
  - Drug interaction [Recovered/Resolved]

NARRATIVE: CASE EVENT DATE: 20210101
